FAERS Safety Report 13414083 (Version 1)
Quarter: 2017Q2

REPORT INFORMATION
  Report Type: Spontaneous
  Country: US (occurrence: US)
  Receive Date: 20170407
  Receipt Date: 20170407
  Transmission Date: 20170830
  Serious: No
  Sender: FDA-Public Use
  Company Number: None

PATIENT
  Age: 79 Year
  Sex: Male
  Weight: 63.56 kg

DRUGS (19)
  1. FOLIC ACID. [Concomitant]
     Active Substance: FOLIC ACID
  2. PROLIA [Suspect]
     Active Substance: DENOSUMAB
     Indication: OSTEOPOROSIS
     Dosage: 1 SHOT EVERY 6 MOS.
  3. ATORVASTIN [Concomitant]
     Active Substance: ATORVASTATIN
  4. E [Concomitant]
  5. D, MAGNESIUM [Concomitant]
  6. SELENIUM [Concomitant]
     Active Substance: SELENIUM
  7. LOVASTATIN. [Concomitant]
     Active Substance: LOVASTATIN
  8. LUCENTIS EYE INJECTION [Concomitant]
  9. VITAMIN B COMPLEX [Concomitant]
     Active Substance: CYANOCOBALAMIN\DEXPANTHENOL\NIACINAMIDE\PYRIDOXINE HYDROCHLORIDE\RIBOFLAVIN 5^-PHOSPHATE SODIUM\THIAMINE HYDROCHLORIDE\VITAMIN B COMPLEX
  10. AREDS [Concomitant]
     Active Substance: MINERALS\VITAMINS
  11. CALCIUM [Concomitant]
     Active Substance: CALCIUM
  12. ZINC. [Concomitant]
     Active Substance: ZINC
  13. MINOXIDIL. [Concomitant]
     Active Substance: MINOXIDIL
  14. FISH OIL [Concomitant]
     Active Substance: FISH OIL
  15. COQ10 [Concomitant]
     Active Substance: UBIDECARENONE
  16. C [Concomitant]
  17. POTASSIUM [Concomitant]
     Active Substance: POTASSIUM
  18. BABY ASPIRIN [Concomitant]
     Active Substance: ASPIRIN
  19. ECHINACEA [Concomitant]
     Active Substance: ECHINACEA, UNSPECIFIED

REACTIONS (4)
  - Disorientation [None]
  - Vertigo [None]
  - Dizziness postural [None]
  - Dizziness [None]

NARRATIVE: CASE EVENT DATE: 20170303
